FAERS Safety Report 5903589-6 (Version None)
Quarter: 2008Q3

REPORT INFORMATION
  Report Type: 
  Country: None (occurrence: None)
  Receive Date: 20080919
  Receipt Date: 20080613
  Transmission Date: 20090109
  Serious: No
  Sender: FDA-Public Use
  Company Number: US-WYE-H04550708

PATIENT

DRUGS (7)
  1. PRISTIQ [Suspect]
     Indication: MAJOR DEPRESSION
     Dosage: 50 MG 1X PER 1 DAY
  2. TOPAMAX [Concomitant]
  3. MESTINON [Concomitant]
  4. ELAVIL [Concomitant]
  5. KLONOPIN [Concomitant]
  6. CLONIDINE [Concomitant]
  7. OMACOR (OMEGA-3 POLYUNSATURATED FATTY ACIDS) [Concomitant]

REACTIONS (4)
  - ANXIETY [None]
  - BLOOD PRESSURE INCREASED [None]
  - DIZZINESS [None]
  - HALLUCINATION [None]
